FAERS Safety Report 5586996-3 (Version None)
Quarter: 2008Q1

REPORT INFORMATION
  Report Type: 
  Country: None (occurrence: None)
  Receive Date: 20080110
  Receipt Date: 20071231
  Transmission Date: 20080703
  Serious: Yes (Death, Hospitalization)
  Sender: FDA-Public Use
  Company Number: CH-SANOFI-SYNTHELABO-F01200701641

PATIENT
  Sex: Female

DRUGS (3)
  1. CAPECITABINE [Suspect]
     Dosage: 14 DAYS
     Route: 048
     Dates: start: 20071120, end: 20071204
  2. GEMCITABINE [Suspect]
     Route: 042
     Dates: start: 20071120, end: 20071127
  3. ELOXATIN [Suspect]
     Indication: ADENOCARCINOMA PANCREAS
     Route: 042
     Dates: start: 20071120, end: 20071120

REACTIONS (4)
  - ARRHYTHMIA SUPRAVENTRICULAR [None]
  - DIARRHOEA [None]
  - ENTEROBACTER SEPSIS [None]
  - SYNCOPE [None]
